FAERS Safety Report 7952054-3 (Version None)
Quarter: 2011Q4

REPORT INFORMATION
  Report Type: 
  Country: None (occurrence: None)
  Receive Date: 20111201
  Receipt Date: 20111129
  Transmission Date: 20120403
  Serious: Yes (Hospitalization)
  Sender: FDA-Public Use
  Company Number: US-AMGEN-USASP2011063033

PATIENT
  Age: 64 Year
  Sex: Female

DRUGS (2)
  1. NPLATE [Suspect]
     Indication: IDIOPATHIC THROMBOCYTOPENIC PURPURA
     Dosage: 8 MUG/KG, UNK
     Dates: start: 20100608, end: 20111010
  2. INTERFERON [Concomitant]
     Indication: HEPATITIS

REACTIONS (2)
  - ILEITIS [None]
  - CHOKING [None]
